FAERS Safety Report 21434039 (Version 1)
Quarter: 2022Q4

REPORT INFORMATION
  Report Type: Report from Study
  Country: US (occurrence: US)
  Receive Date: 20221010
  Receipt Date: 20221010
  Transmission Date: 20230112
  Serious: No
  Sender: FDA-Public Use
  Company Number: US-ABBVIE-4142210

PATIENT
  Sex: Female

DRUGS (6)
  1. SKYRIZI [Suspect]
     Active Substance: RISANKIZUMAB-RZAA
     Indication: Psoriasis
     Route: 058
     Dates: start: 20220323, end: 2022
  2. SKYRIZI [Suspect]
     Active Substance: RISANKIZUMAB-RZAA
     Route: 058
     Dates: start: 2022
  3. 2.5 mg Methotrexate [Concomitant]
     Indication: Product used for unknown indication
  4. 7.5 mg Meloxicam [Concomitant]
     Indication: Product used for unknown indication
  5. EFFEXOR XR [Concomitant]
     Active Substance: VENLAFAXINE HYDROCHLORIDE
     Indication: Product used for unknown indication
  6. 10.0 mg Zetia [Concomitant]
     Indication: Product used for unknown indication

REACTIONS (6)
  - Oral herpes [Unknown]
  - Hypoaesthesia [Unknown]
  - COVID-19 [Unknown]
  - Pain [Unknown]
  - Paraesthesia [Unknown]
  - Tendon rupture [Unknown]

NARRATIVE: CASE EVENT DATE: 20220101
